FAERS Safety Report 4269345-2 (Version None)
Quarter: 2004Q1

REPORT INFORMATION
  Report Type: 
  Country: None (occurrence: None)
  Receive Date: 20040108
  Receipt Date: 20031219
  Transmission Date: 20041129
  Serious: Yes (Hospitalization)
  Sender: FDA-Public Use
  Company Number: 2003-108830-NL

PATIENT
  Age: 38 Year
  Sex: Female
  Weight: 90 kg

DRUGS (2)
  1. REMERON [Suspect]
     Dosage: 30 MG DAILY
     Dates: end: 20030901
  2. DICLOFENAC SODIUM [Concomitant]

REACTIONS (3)
  - ANGER [None]
  - APPENDICITIS [None]
  - ARTHRITIS [None]
